FAERS Safety Report 9304277 (Version 1)
Quarter: 2013Q2

REPORT INFORMATION
  Report Type: Spontaneous
  Country: GB (occurrence: GB)
  Receive Date: 20130522
  Receipt Date: 20130522
  Transmission Date: 20140414
  Serious: Yes (Hospitalization)
  Sender: FDA-Public Use
  Company Number: GB-MYLANLABS-2013S1010330

PATIENT
  Age: 51 Year
  Sex: Male

DRUGS (7)
  1. ATENOLOL [Suspect]
     Indication: HYPERTENSION
  2. DIGOXIN [Suspect]
     Indication: ATRIAL FIBRILLATION
     Dates: end: 20030519
  3. ATORVASTATIN [Concomitant]
     Indication: HYPERCHOLESTEROLAEMIA
  4. BUMETANIDE [Concomitant]
     Indication: HYPERTENSION
  5. ISOSORBIDE [Concomitant]
     Indication: CORONARY ARTERY DISEASE
  6. PERINDOPRIL [Concomitant]
     Indication: HYPERTENSION
  7. WARFARIN [Concomitant]
     Indication: ATRIAL FIBRILLATION

REACTIONS (2)
  - Bradycardia [Unknown]
  - Circulatory collapse [Unknown]
